FAERS Safety Report 12104430 (Version 2)
Quarter: 2016Q1

REPORT INFORMATION
  Report Type: Spontaneous
  Country: US (occurrence: US)
  Receive Date: 20160223
  Receipt Date: 20160325
  Transmission Date: 20160526
  Serious: Yes (Other)
  Sender: FDA-Public Use
  Company Number: US-ASTELLAS-2016US006009

PATIENT
  Sex: Female

DRUGS (2)
  1. LEXISCAN [Suspect]
     Active Substance: REGADENOSON
     Indication: PRODUCT USED FOR UNKNOWN INDICATION
     Dosage: UNK UNK, UNKNOWN FREQ.
     Route: 065
  2. RUBIDIUM [Concomitant]
     Active Substance: RUBIDIUM CHLORIDE RB-82
     Indication: PRODUCT USED FOR UNKNOWN INDICATION
     Dosage: UNK UNK, UNKNOWN FREQ.
     Route: 065

REACTIONS (2)
  - Cardio-respiratory arrest [Recovered/Resolved]
  - Left ventricle outflow tract obstruction [Recovered/Resolved]
